FAERS Safety Report 5099558-1 (Version None)
Quarter: 2006Q3

REPORT INFORMATION
  Report Type: 
  Country: None (occurrence: None)
  Receive Date: 20060908
  Receipt Date: 20060810
  Transmission Date: 20061208
  Serious: Yes (Other)
  Sender: FDA-Public Use
  Company Number: PHFR2006GB02494

PATIENT
  Age: 9 Year
  Sex: Male
  Weight: 26.2 kg

DRUGS (1)
  1. RITALIN [Suspect]
     Indication: ATTENTION DEFICIT/HYPERACTIVITY DISORDER
     Dosage: 10 MG, QID
     Route: 048
     Dates: start: 20051212

REACTIONS (3)
  - DIARRHOEA [None]
  - RECTAL DISCHARGE [None]
  - WEIGHT DECREASED [None]
